FAERS Safety Report 9659686 (Version 1)
Quarter: 2013Q4

REPORT INFORMATION
  Report Type: Spontaneous
  Country: US (occurrence: None)
  Receive Date: 20131029
  Receipt Date: 20131029
  Transmission Date: 20140711
  Serious: Yes (Other)
  Sender: FDA-Public Use
  Company Number: 00619

PATIENT
  Age: 8 Year
  Sex: Female

DRUGS (1)
  1. SMILE^SPRID DRAWING SALVE [Suspect]
     Dosage: 1 APP TO UPPER BACK / NECK

REACTIONS (3)
  - Urticaria [None]
  - Lip swelling [None]
  - Dysphagia [None]
